FAERS Safety Report 22049142 (Version 1)
Quarter: 2023Q1

REPORT INFORMATION
  Report Type: Report from Study
  Country: IT (occurrence: IT)
  Receive Date: 20230301
  Receipt Date: 20230301
  Transmission Date: 20230418
  Serious: Yes (Other)
  Sender: FDA-Public Use
  Company Number: IT-009507513-2302ITA003498

PATIENT
  Sex: Female

DRUGS (5)
  1. PACLITAXEL [Suspect]
     Active Substance: PACLITAXEL
     Indication: Product used for unknown indication
     Dosage: UNK (4 CYCLES)
     Route: 065
  2. DOXORUBICIN [Suspect]
     Active Substance: DOXORUBICIN
     Indication: Product used for unknown indication
     Dosage: UNK (1ST CYCLE)
     Route: 065
     Dates: start: 20221122
  3. PEMBROLIZUMAB [Suspect]
     Active Substance: PEMBROLIZUMAB
     Indication: Product used for unknown indication
     Dosage: UNK (4 CYCLES)
     Route: 065
  4. CYCLOPHOSPHAMIDE [Suspect]
     Active Substance: CYCLOPHOSPHAMIDE
     Indication: Product used for unknown indication
     Dosage: UNK (1ST CYCLE)
     Route: 065
     Dates: start: 20221122
  5. CARBOPLATIN [Suspect]
     Active Substance: CARBOPLATIN
     Indication: Product used for unknown indication
     Dosage: UNK (4 CYCLES)
     Route: 065

REACTIONS (6)
  - Leukopenia [Recovered/Resolved]
  - Syncope [Unknown]
  - Thrombocytopenia [Recovered/Resolved]
  - Laboratory test abnormal [Recovered/Resolved]
  - Hypertransaminasaemia [Recovered/Resolved]
  - Anaemia [Recovered/Resolved]

NARRATIVE: CASE EVENT DATE: 20221201
